FAERS Safety Report 9263146 (Version 1)
Quarter: 2013Q2

REPORT INFORMATION
  Report Type: Spontaneous
  Country: FR (occurrence: None)
  Receive Date: 20130426
  Receipt Date: 20130426
  Transmission Date: 20140414
  Serious: Yes (Life-Threatening, Hospitalization)
  Sender: FDA-Public Use
  Company Number: 1674488

PATIENT
  Age: 81 Year
  Sex: Male

DRUGS (2)
  1. CARBOPLATIN [Suspect]
     Indication: LUNG NEOPLASM MALIGNANT
     Dosage: SINGLE DOSE
     Route: 042
     Dates: start: 20120706, end: 20120706
  2. PACLITAXEL [Suspect]
     Indication: LUNG NEOPLASM MALIGNANT
     Dosage: SINGLE DOSE
     Route: 042
     Dates: start: 20120706, end: 20120706

REACTIONS (6)
  - Acute respiratory distress syndrome [None]
  - Pleural effusion [None]
  - Emphysema [None]
  - Leukocytosis [None]
  - Lymphopenia [None]
  - Inflammation [None]
